FAERS Safety Report 25289590 (Version 1)
Quarter: 2025Q2

REPORT INFORMATION
  Report Type: Spontaneous
  Country: US (occurrence: US)
  Receive Date: 20250509
  Receipt Date: 20250509
  Transmission Date: 20250717
  Serious: No
  Sender: PFIZER
  Company Number: US-PFIZER INC-202500095688

PATIENT
  Age: 36 Year
  Sex: Female
  Weight: 109.77 kg

DRUGS (2)
  1. LEVOXYL [Suspect]
     Active Substance: LEVOTHYROXINE SODIUM
     Indication: Hypothyroidism
     Dosage: UNK, 1X/DAY
     Route: 048
     Dates: start: 2016
  2. HALDOL [Concomitant]
     Active Substance: HALOPERIDOL

REACTIONS (6)
  - Pain in extremity [Unknown]
  - Chest pain [Unknown]
  - Back pain [Unknown]
  - Hyperhidrosis [Unknown]
  - Malaise [Unknown]
  - Disturbance in attention [Unknown]
